FAERS Safety Report 7812318-0 (Version None)
Quarter: 2011Q4

REPORT INFORMATION
  Report Type: 
  Country: None (occurrence: None)
  Receive Date: 20111013
  Receipt Date: 20111007
  Transmission Date: 20120403
  Serious: Yes (Hospitalization)
  Sender: FDA-Public Use
  Company Number: US-GLAXOSMITHKLINE-A0727536A

PATIENT
  Age: 51 Year
  Sex: Male
  Weight: 156.8 kg

DRUGS (1)
  1. AVANDIA [Suspect]
     Indication: TYPE 2 DIABETES MELLITUS
     Dosage: 8MG PER DAY
     Route: 048
     Dates: start: 19990628, end: 20050913

REACTIONS (3)
  - PAIN [None]
  - HEART RATE IRREGULAR [None]
  - MYOCARDIAL INFARCTION [None]
